FAERS Safety Report 17864164 (Version 3)
Quarter: 2020Q3

REPORT INFORMATION
  Report Type: Spontaneous
  Country: US (occurrence: US)
  Receive Date: 20200605
  Receipt Date: 20200805
  Transmission Date: 20201103
  Serious: Yes (Hospitalization)
  Sender: FDA-Public Use
  Company Number: US-LEXICON PHARMACEUTICALS, INC-20-1606-00439

PATIENT
  Age: 54 Year
  Sex: Female

DRUGS (2)
  1. XERMELO [Suspect]
     Active Substance: TELOTRISTAT ETHYL
  2. XERMELO [Suspect]
     Active Substance: TELOTRISTAT ETHYL
     Indication: CARCINOID SYNDROME
     Dates: start: 20200512

REACTIONS (4)
  - Product dose omission issue [Recovered/Resolved]
  - Stoma site discomfort [Not Recovered/Not Resolved]
  - Infection [Unknown]
  - Surgery [Not Recovered/Not Resolved]

NARRATIVE: CASE EVENT DATE: 202007
